FAERS Safety Report 5237033-1 (Version None)
Quarter: 2007Q1

REPORT INFORMATION
  Report Type: 
  Country: None (occurrence: None)
  Receive Date: 20070209
  Receipt Date: 20070131
  Transmission Date: 20070707
  Serious: Yes (Congenital Anomaly)
  Sender: FDA-Public Use
  Company Number: 2007AL000481

PATIENT

DRUGS (4)
  1. APAP WITH CODEINE [Suspect]
     Dosage: TRPL
     Route: 064
  2. TRAMADOL HCL [Concomitant]
  3. CO-DYDRAMOL [Concomitant]
  4. IMIPRAMINE [Concomitant]

REACTIONS (2)
  - CONGENITAL MULTIPLEX ARTHROGRYPOSIS [None]
  - DRUG EXPOSURE DURING PREGNANCY [None]
